FAERS Safety Report 20760921 (Version 1)
Quarter: 2022Q2

REPORT INFORMATION
  Report Type: Report from Study
  Country: BR (occurrence: BR)
  Receive Date: 20220428
  Receipt Date: 20220428
  Transmission Date: 20220721
  Serious: Yes (Other)
  Sender: FDA-Public Use
  Company Number: BR-JNJFOC-20211263746

PATIENT
  Age: 6 Decade
  Sex: Female
  Weight: 72 kg

DRUGS (6)
  1. REMICADE [Suspect]
     Active Substance: INFLIXIMAB
     Indication: Crohn^s disease
     Route: 042
     Dates: start: 20180912
  2. REMICADE [Suspect]
     Active Substance: INFLIXIMAB
     Indication: Spondyloarthropathy
  3. EXEMESTANE [Concomitant]
     Active Substance: EXEMESTANE
  4. MESALAMINE [Concomitant]
     Active Substance: MESALAMINE
  5. PREGABALIN [Concomitant]
     Active Substance: PREGABALIN
  6. DEXILANT [Concomitant]
     Active Substance: DEXLANSOPRAZOLE

REACTIONS (6)
  - Breast reconstruction [Recovering/Resolving]
  - Pain [Unknown]
  - Infusion related reaction [Unknown]
  - Migraine [Not Recovered/Not Resolved]
  - Off label use [Unknown]
  - Inappropriate schedule of product administration [Unknown]

NARRATIVE: CASE EVENT DATE: 20180912
